FAERS Safety Report 15573128 (Version 3)
Quarter: 2019Q4

REPORT INFORMATION
  Report Type: Spontaneous
  Country: US (occurrence: US)
  Receive Date: 20181101
  Receipt Date: 20191223
  Transmission Date: 20200122
  Serious: Yes (Other)
  Sender: FDA-Public Use
  Company Number: US-SA-2018SA251783

PATIENT
  Sex: Female

DRUGS (1)
  1. GOLD BOND ULTIMATE ECZEMA RELIEF [Suspect]
     Active Substance: OATMEAL
     Indication: ECZEMA

REACTIONS (5)
  - Hypersensitivity [Unknown]
  - Dementia Alzheimer^s type [Unknown]
  - Stress [Unknown]
  - Eczema [Unknown]
  - Skin discolouration [Unknown]
